FAERS Safety Report 6940675-6 (Version None)
Quarter: 2010Q3

REPORT INFORMATION
  Report Type: 
  Country: None (occurrence: None)
  Receive Date: 20100825
  Receipt Date: 20100818
  Transmission Date: 20110219
  Serious: Yes (Hospitalization)
  Sender: FDA-Public Use
  Company Number: KR-ROCHE-707934

PATIENT
  Sex: Female
  Weight: 54 kg

DRUGS (23)
  1. TRASTUZUMAB [Suspect]
     Dosage: LOADING DOSE: 8 MG/KG AS PER PROTOCOL.
     Route: 042
     Dates: start: 20100430, end: 20100430
  2. TRASTUZUMAB [Suspect]
     Dosage: MAINTAINENCE DOSE: 6 MG/KG.FORM: INFUSION
     Route: 042
     Dates: start: 20100521, end: 20100728
  3. PERTUZUMAB [Suspect]
     Dosage: LOADING DOSE
     Route: 042
     Dates: start: 20100429, end: 20100429
  4. PERTUZUMAB [Suspect]
     Dosage: LAST DOSE PRIOR TO SAE: 20 MAY 2010. FORM: INFUSION
     Route: 042
     Dates: start: 20100520, end: 20100728
  5. DOCETAXEL [Suspect]
     Dosage: LAST DOSE PRIOR TO SAE: 20 MAY 2010. FORM INFUSION.
     Route: 042
     Dates: start: 20100430, end: 20100728
  6. AVANDAMET [Concomitant]
     Dates: start: 20070618
  7. DICAMAX [Concomitant]
     Dates: start: 20080731
  8. FENOFIBRATE [Concomitant]
     Dates: start: 20100111
  9. BENZYDAMINE HCL [Concomitant]
     Dosage: DOSE: GARGLE
     Dates: start: 20100416
  10. POVIDONE IODINE [Concomitant]
     Dosage: DOSE: GARGLE
     Dates: start: 20100430
  11. CHLORPHENIRAMINE MALEATE [Concomitant]
     Dates: start: 20100429
  12. METOCLOPRAMIDE HCL [Concomitant]
     Dates: start: 20100430
  13. DEXAMETHASONE SODIUM PHOSPHATE [Concomitant]
     Dates: start: 20100430
  14. CIMETIDINE [Concomitant]
     Dates: start: 20100430
  15. RAMOSETRON [Concomitant]
     Dates: start: 20100430
  16. ULTRACET [Concomitant]
     Dates: start: 20100430, end: 20100526
  17. DIAZEPAM [Concomitant]
     Dates: start: 20100430
  18. ZOLPIDEM [Concomitant]
     Dates: start: 20100430
  19. MAGNESIUM OXIDE [Concomitant]
     Dates: start: 20100527, end: 20100606
  20. RABEPRAZOLE SODIUM [Concomitant]
     Dates: start: 20100527
  21. REBAMIPIDE [Concomitant]
     Dates: start: 20100527
  22. ACETAMINOPHEN [Concomitant]
     Dates: start: 20100605
  23. HYPOL [Concomitant]
     Dates: start: 20100604

REACTIONS (2)
  - HAEMOPTYSIS [None]
  - PNEUMONIA ASPIRATION [None]
